FAERS Safety Report 6892597-7 (Version None)
Quarter: 2010Q3

REPORT INFORMATION
  Report Type: 
  Country: None (occurrence: None)
  Receive Date: 20100731
  Receipt Date: 20080709
  Transmission Date: 20110219
  Serious: No
  Sender: FDA-Public Use
  Company Number: US-PFIZER INC-2008058030

PATIENT
  Sex: Female
  Weight: 65.77 kg

DRUGS (6)
  1. NORVASC [Suspect]
     Indication: HYPERTENSION
  2. AVAPRO [Concomitant]
  3. LEVOTHYROXINE SODIUM [Concomitant]
     Indication: THYROID DISORDER
  4. AVELOX [Concomitant]
  5. DIFLUCAN [Concomitant]
  6. ASPIRINE [Concomitant]

REACTIONS (2)
  - COUGH [None]
  - OEDEMA PERIPHERAL [None]
